FAERS Safety Report 13772532 (Version 3)
Quarter: 2017Q4

REPORT INFORMATION
  Report Type: Report from Study
  Country: CA (occurrence: CA)
  Receive Date: 20170720
  Receipt Date: 20171106
  Transmission Date: 20180320
  Serious: Yes (Other)
  Sender: FDA-Public Use
  Company Number: CA-GLAXOSMITHKLINE-CA2017GSK110172

PATIENT
  Age: 57 Year
  Sex: Female

DRUGS (9)
  1. CORTISONE [Concomitant]
     Active Substance: CORTISONE\HYDROCORTISONE
  2. CLONAZEPAM. [Concomitant]
     Active Substance: CLONAZEPAM
  3. DICLOFENAC SODIUM. [Suspect]
     Active Substance: DICLOFENAC SODIUM
     Indication: PRODUCT USED FOR UNKNOWN INDICATION
  4. COSENTYX [Suspect]
     Active Substance: SECUKINUMAB
     Dosage: 150 MG, QMO
     Route: 058
     Dates: start: 20170902
  5. METHOTREXATE. [Concomitant]
     Active Substance: METHOTREXATE
  6. COSENTYX [Suspect]
     Active Substance: SECUKINUMAB
     Indication: ANKYLOSING SPONDYLITIS
     Dosage: 150 MG, WE
     Route: 058
     Dates: start: 20170707
  7. ADVIL [Concomitant]
     Active Substance: IBUPROFEN
  8. CELEBREX [Concomitant]
     Active Substance: CELECOXIB
  9. NAPROXEN. [Concomitant]
     Active Substance: NAPROXEN

REACTIONS (6)
  - Asthenopia [Recovered/Resolved]
  - Drug ineffective [Unknown]
  - Feeling abnormal [Unknown]
  - Influenza [Unknown]
  - Viral upper respiratory tract infection [Unknown]
  - Ankylosing spondylitis [Unknown]

NARRATIVE: CASE EVENT DATE: 201707
